FAERS Safety Report 12983599 (Version 6)
Quarter: 2017Q1

REPORT INFORMATION
  Report Type: Report from Study
  Country: None (occurrence: BE)
  Receive Date: 20161129
  Receipt Date: 20170215
  Transmission Date: 20170428
  Serious: Yes (Hospitalization)
  Sender: FDA-Public Use
  Company Number: BE-ABBVIE-16P-013-1792169-00

PATIENT
  Sex: Female

DRUGS (8)
  1. RIVOTRIL [Concomitant]
     Active Substance: CLONAZEPAM
     Indication: PRODUCT USED FOR UNKNOWN INDICATION
  2. DUODOPA [Suspect]
     Active Substance: CARBIDOPA\LEVODOPA
     Dosage: DOSES CONTINUOUSLY MONITORED AND ADAPTED
     Route: 050
     Dates: start: 20140814, end: 20141222
  3. DUODOPA [Suspect]
     Active Substance: CARBIDOPA\LEVODOPA
     Dosage: AM= 3 ML; CD= 5.8 ML/H DURING 16 HRS; ND= 4 ML/H DURING 8 HRS; ED= 5 ML
     Route: 050
     Dates: start: 20141222, end: 20170109
  4. DUODOPA [Suspect]
     Active Substance: CARBIDOPA\LEVODOPA
     Dosage: AM= 3 ML; CD= 5.9 ML/H DURING 16 HRS; ED= 6 ML
     Route: 050
     Dates: start: 20170109
  5. DUODOPA [Suspect]
     Active Substance: CARBIDOPA\LEVODOPA
     Indication: PARKINSON^S DISEASE
     Dosage: AM= 3 ML; CD= 3.5 ML/H DURING 16 HRS;  ND= 2.5 ML/H DURING 8 HRS; ED= 5 ML
     Route: 050
     Dates: start: 20140804, end: 20140814
  6. OMNIBIONTA 3 [Concomitant]
     Indication: PRODUCT USED FOR UNKNOWN INDICATION
  7. LORMETAZEPAM [Concomitant]
     Active Substance: LORMETAZEPAM
     Indication: PRODUCT USED FOR UNKNOWN INDICATION
  8. REMERGON [Concomitant]
     Active Substance: MIRTAZAPINE
     Indication: PRODUCT USED FOR UNKNOWN INDICATION

REACTIONS (5)
  - Malaise [Unknown]
  - Gait disturbance [Not Recovered/Not Resolved]
  - Device kink [Unknown]
  - Drug ineffective [Recovering/Resolving]
  - General physical health deterioration [Not Recovered/Not Resolved]
